FAERS Safety Report 16819269 (Version 2)
Quarter: 2020Q3

REPORT INFORMATION
  Report Type: Report from Study
  Country: US (occurrence: US)
  Receive Date: 20190917
  Receipt Date: 20190927
  Transmission Date: 20201104
  Serious: Yes (Death)
  Sender: FDA-Public Use
  Company Number: US-TEVA-2019-US-1108706

PATIENT
  Age: 32 Year
  Sex: Male

DRUGS (4)
  1. EPHEDRINE. [Suspect]
     Active Substance: EPHEDRINE
     Route: 065
  2. GABAPENTIN. [Suspect]
     Active Substance: GABAPENTIN
     Route: 065
  3. FENTANYL. [Interacting]
     Active Substance: FENTANYL
     Route: 065
  4. AMLODIPINE [Suspect]
     Active Substance: AMLODIPINE BESYLATE
     Route: 065

REACTIONS (4)
  - Drug abuse [Fatal]
  - Drug interaction [Fatal]
  - Toxicity to various agents [Fatal]
  - Completed suicide [Fatal]
